FAERS Safety Report 9870104 (Version 1)
Quarter: 2014Q1

REPORT INFORMATION
  Report Type: Spontaneous
  Country: FR (occurrence: FR)
  Receive Date: 20140205
  Receipt Date: 20140205
  Transmission Date: 20141002
  Serious: Yes (Life-Threatening, Other)
  Sender: FDA-Public Use
  Company Number: FR-009507513-1401FRA011898

PATIENT
  Age: 53 Year
  Sex: Female

DRUGS (5)
  1. CANCIDAS [Suspect]
     Indication: PNEUMONIA
     Dosage: UNK
     Route: 042
     Dates: start: 20131217, end: 20131221
  2. ORBENINE [Suspect]
     Indication: ENDOCARDITIS
     Dosage: UNK
     Route: 042
     Dates: start: 20131127, end: 20131221
  3. DALACINE [Suspect]
     Indication: SEPSIS
     Dosage: UNK
     Route: 042
     Dates: start: 20131207, end: 20131221
  4. RIFADIN [Suspect]
     Indication: ENDOCARDITIS
     Dosage: UNK
     Route: 042
     Dates: start: 20131212, end: 20131221
  5. INEXIUM [Suspect]
     Indication: GASTROOESOPHAGEAL REFLUX DISEASE
     Dosage: UNK
     Route: 048
     Dates: start: 20131205

REACTIONS (1)
  - Agranulocytosis [Recovered/Resolved]
